FAERS Safety Report 7621439-7 (Version None)
Quarter: 2011Q3

REPORT INFORMATION
  Report Type: 
  Country: None (occurrence: None)
  Receive Date: 20110719
  Receipt Date: 20110711
  Transmission Date: 20111222
  Serious: Yes (Hospitalization, Other)
  Sender: FDA-Public Use
  Company Number: US-PFIZER INC-2011161948

PATIENT
  Age: 34 Year
  Sex: Female

DRUGS (4)
  1. CORTICOSTEROIDS [Suspect]
     Indication: INTRAVENTRICULAR HAEMORRHAGE NEONATAL
  2. MAGNESIUM SULFATE [Suspect]
  3. SERTRALINE HYDROCHLORIDE [Suspect]
     Indication: DEPRESSION
     Dosage: 50 MG, 1X/DAY
  4. CORTICOSTEROIDS [Suspect]
     Indication: NEONATAL RESPIRATORY DISTRESS SYNDROME

REACTIONS (2)
  - CAESAREAN SECTION [None]
  - PREMATURE RUPTURE OF MEMBRANES [None]
